FAERS Safety Report 12960951 (Version 1)
Quarter: 2016Q4

REPORT INFORMATION
  Report Type: Spontaneous
  Country: US (occurrence: US)
  Receive Date: 20161121
  Receipt Date: 20161121
  Transmission Date: 20170207
  Serious: No
  Sender: FDA-Public Use
  Company Number: US-BAYER-2016-218891

PATIENT
  Age: 40 Year
  Sex: Female

DRUGS (1)
  1. MIRENA [Suspect]
     Active Substance: LEVONORGESTREL
     Dosage: 20 MCG/24HR, CONT
     Route: 015
     Dates: start: 20160913, end: 20160923

REACTIONS (9)
  - Anxiety [None]
  - Migraine [None]
  - Insomnia [None]
  - Abdominal pain [None]
  - Hot flush [None]
  - Breast tenderness [None]
  - Device intolerance [None]
  - Pelvic pain [None]
  - Abdominal pain lower [None]

NARRATIVE: CASE EVENT DATE: 2016
